FAERS Safety Report 4953433-9 (Version None)
Quarter: 2006Q1

REPORT INFORMATION
  Report Type: 
  Country: None (occurrence: None)
  Receive Date: 20060324
  Receipt Date: 20060315
  Transmission Date: 20060701
  Serious: Yes (Hospitalization)
  Sender: FDA-Public Use
  Company Number: FR-ABBOTT-06P-056-0328385-00

PATIENT
  Sex: Female
  Weight: 2.63 kg

DRUGS (7)
  1. KALETRA [Suspect]
     Indication: DRUG EXPOSURE DURING PREGNANCY
     Dates: start: 20040520, end: 20040918
  2. ZIDOVUDINE [Suspect]
     Indication: DRUG EXPOSURE DURING PREGNANCY
     Dates: start: 20040520, end: 20040918
  3. TENOFOVIR [Suspect]
     Indication: DRUG EXPOSURE DURING PREGNANCY
     Dates: start: 20040520, end: 20040918
  4. ZIDOVUDINE [Suspect]
     Dates: start: 20040918, end: 20040918
  5. NELFINAVIR [Concomitant]
     Indication: HIV INFECTION
     Route: 048
     Dates: end: 20040520
  6. LAMIVUDINE + ZIDOVUDINE [Concomitant]
     Indication: HIV INFECTION
     Route: 048
     Dates: end: 20040520
  7. ZIDOVUDINE [Concomitant]
     Indication: SYSTEMIC ANTIVIRAL TREATMENT
     Route: 048
     Dates: start: 20040918, end: 20041005

REACTIONS (3)
  - ANAEMIA [None]
  - DRUG EXPOSURE DURING PREGNANCY [None]
  - GLUCOSE-6-PHOSPHATE DEHYDROGENASE DEFICIENCY [None]
